FAERS Safety Report 20649328 (Version 1)
Quarter: 2022Q1

REPORT INFORMATION
  Report Type: Spontaneous
  Country: US (occurrence: None)
  Receive Date: 20220329
  Receipt Date: 20220329
  Transmission Date: 20220423
  Serious: Yes (Hospitalization)
  Sender: FDA-Public Use
  Company Number: None

PATIENT
  Age: 72 Year
  Sex: Female
  Weight: 95.2 kg

DRUGS (1)
  1. PALBOCICLIB [Suspect]
     Active Substance: PALBOCICLIB
     Dates: end: 20220216

REACTIONS (12)
  - Hypoxia [None]
  - Malaise [None]
  - Leukopenia [None]
  - Asthenia [None]
  - Hypophagia [None]
  - Urinary incontinence [None]
  - Haemoglobin decreased [None]
  - Platelet count decreased [None]
  - Bacterial test [None]
  - Nitrite urine present [None]
  - White blood cells urine positive [None]
  - Lung opacity [None]

NARRATIVE: CASE EVENT DATE: 20220301
